FAERS Safety Report 5610420-5 (Version None)
Quarter: 2008Q1

REPORT INFORMATION
  Report Type: 
  Country: None (occurrence: None)
  Receive Date: 20080128
  Receipt Date: 20080116
  Transmission Date: 20080703
  Serious: Yes (Hospitalization)
  Sender: FDA-Public Use
  Company Number: 002#2#2007-00335

PATIENT
  Age: 57 Year
  Sex: Male
  Weight: 56.6996 kg

DRUGS (9)
  1. NEUPRO [Suspect]
     Indication: PARKINSON'S DISEASE
     Dosage: 2MG/24H,1 IN 1 D,TRANSDERMAL; 4MG/24H,1 IN 1 D,TRANSDERMAL;6MG/24H,1 IN D,TRANSDERMAL
     Route: 062
     Dates: start: 20070101, end: 20070101
  2. NEUPRO [Suspect]
     Indication: PARKINSON'S DISEASE
     Dosage: 2MG/24H,1 IN 1 D,TRANSDERMAL; 4MG/24H,1 IN 1 D,TRANSDERMAL;6MG/24H,1 IN D,TRANSDERMAL
     Route: 062
     Dates: start: 20071018, end: 20071001
  3. NEUPRO [Suspect]
     Indication: PARKINSON'S DISEASE
     Dosage: 2MG/24H,1 IN 1 D,TRANSDERMAL; 4MG/24H,1 IN 1 D,TRANSDERMAL;6MG/24H,1 IN D,TRANSDERMAL
     Route: 062
     Dates: start: 20071018, end: 20071001
  4. NEUPRO [Suspect]
     Indication: PARKINSON'S DISEASE
     Dosage: 2MG/24H,1 IN 1 D,TRANSDERMAL; 4MG/24H,1 IN 1 D,TRANSDERMAL;6MG/24H,1 IN D,TRANSDERMAL
     Route: 062
     Dates: start: 20071029, end: 20071030
  5. SINEMET CT [Concomitant]
  6. COMTAN [Concomitant]
  7. ARTANE [Concomitant]
  8. AMANTADINE HCL [Concomitant]
  9. SEROQUEL [Concomitant]

REACTIONS (3)
  - DELUSION [None]
  - HALLUCINATION [None]
  - PARKINSON'S DISEASE [None]
